FAERS Safety Report 12643013 (Version 1)
Quarter: 2016Q3

REPORT INFORMATION
  Report Type: Report from Study
  Country: US (occurrence: US)
  Receive Date: 20160811
  Receipt Date: 20160811
  Transmission Date: 20161109
  Serious: Yes (Hospitalization, Other)
  Sender: FDA-Public Use
  Company Number: US-ROCHE-1085778

PATIENT
  Age: 58 Year
  Sex: Female
  Weight: 84.5 kg

DRUGS (4)
  1. VISMODEGIB [Suspect]
     Active Substance: VISMODEGIB
     Route: 048
     Dates: start: 20120328
  2. VISMODEGIB [Suspect]
     Active Substance: VISMODEGIB
     Route: 048
     Dates: start: 20120425, end: 20120428
  3. VISMODEGIB [Suspect]
     Active Substance: VISMODEGIB
     Indication: PLASMA CELL MYELOMA
     Dosage: LAST ADMINISTERED DATE: 27/APR/2012?4200 MG (COURSE 1)
     Route: 048
     Dates: start: 20120201
  4. VISMODEGIB [Suspect]
     Active Substance: VISMODEGIB
     Route: 048
     Dates: start: 20120229

REACTIONS (4)
  - Muscular weakness [Not Recovered/Not Resolved]
  - Dysphagia [Not Recovered/Not Resolved]
  - Muscle spasms [Unknown]
  - Muscle twitching [Unknown]

NARRATIVE: CASE EVENT DATE: 20120527
